FAERS Safety Report 17583156 (Version 2)
Quarter: 2020Q1

REPORT INFORMATION
  Report Type: Spontaneous
  Country: US (occurrence: US)
  Receive Date: 20200325
  Receipt Date: 20200331
  Transmission Date: 20200409
  Serious: Yes (Other)
  Sender: FDA-Public Use
  Company Number: US-BRISTOL-MYERS SQUIBB COMPANY-BMS-2020-025443

PATIENT
  Sex: Male
  Weight: 66.67 kg

DRUGS (1)
  1. ELIQUIS [Suspect]
     Active Substance: APIXABAN
     Indication: CEREBROVASCULAR ACCIDENT PROPHYLAXIS
     Dosage: 5 MILLIGRAM, BID
     Route: 048
     Dates: start: 201911

REACTIONS (5)
  - Product dose omission [Unknown]
  - Transient ischaemic attack [Unknown]
  - Hypoacusis [Unknown]
  - Tooth disorder [Unknown]
  - Dizziness [Unknown]
